FAERS Safety Report 24286457 (Version 1)
Quarter: 2024Q3

REPORT INFORMATION
  Report Type: Other
  Country: ES (occurrence: ES)
  Receive Date: 20240905
  Receipt Date: 20240905
  Transmission Date: 20241016
  Serious: Yes (Other)
  Sender: DUCHESNAY
  Company Number: ES-AEMPS-1506565

PATIENT

DRUGS (1)
  1. NITISINONE [Suspect]
     Active Substance: NITISINONE
     Indication: Alkaptonuria
     Dosage: 2MG X 1 PER 48 HOURS
     Route: 048
     Dates: start: 20230401, end: 20230727

REACTIONS (1)
  - Renal impairment [Recovered/Resolved]

NARRATIVE: CASE EVENT DATE: 20230727
